FAERS Safety Report 4371497-0 (Version None)
Quarter: 2004Q2

REPORT INFORMATION
  Report Type: 
  Country: None (occurrence: None)
  Receive Date: 20040602
  Receipt Date: 20040520
  Transmission Date: 20050107
  Serious: Yes (Other)
  Sender: FDA-Public Use
  Company Number: US-JNJFOC-20040505606

PATIENT
  Age: 62 Year
  Sex: Female
  Weight: 80.2867 kg

DRUGS (16)
  1. REMICADE [Suspect]
     Indication: POLYMYOSITIS
     Dosage: 200 MG, INTRAVENOUS
     Route: 042
     Dates: start: 20040329
  2. REMICADE [Suspect]
     Indication: POLYMYOSITIS
     Dosage: 200 MG, INTRAVENOUS
     Route: 042
     Dates: start: 20040412
  3. HUMALOG [Concomitant]
  4. ZESTRIL [Concomitant]
  5. TOPROL-XL [Concomitant]
  6. FIORINAL [Concomitant]
  7. ELAVIL (AMTRIPTYLINE HYDROCHLORIDE) [Concomitant]
  8. K-DUR 10 [Concomitant]
  9. VITAMIN B6 [Concomitant]
  10. METHOTREXATE [Concomitant]
  11. PREDNISONE TAB [Concomitant]
  12. PRILOSEC (OMPEPRAZOLE) [Concomitant]
  13. ACTONEL [Concomitant]
  14. FOLIC ACID [Concomitant]
  15. AMARYL [Concomitant]
  16. XANAX [Concomitant]

REACTIONS (2)
  - HAEMOPTYSIS [None]
  - TUBERCULOSIS [None]
